FAERS Safety Report 18396769 (Version 2)
Quarter: 2020Q4

REPORT INFORMATION
  Report Type: Spontaneous
  Country: US (occurrence: US)
  Receive Date: 20201019
  Receipt Date: 20201105
  Transmission Date: 20210114
  Serious: No
  Sender: FDA-Public Use
  Company Number: US-AMGEN-USASP2020169295

PATIENT
  Sex: Female
  Weight: 78.93 kg

DRUGS (2)
  1. HUMIRA [Suspect]
     Active Substance: ADALIMUMAB
     Indication: RHEUMATOID ARTHRITIS
     Dosage: UNK, WEEKLY (INJECTION ONCE A WEEK ON WEDNESDAY, 1 IN 1 WEEK)
     Route: 058
     Dates: end: 2018
  2. ENBREL [Suspect]
     Active Substance: ETANERCEPT
     Indication: RHEUMATOID ARTHRITIS
     Dosage: 50 MG, WEEKLY (50MG INJECTION IN STOMACH ONCE A WEEK, SHE USED TO ROTATE SIDES)
     Route: 065
     Dates: end: 20200909

REACTIONS (5)
  - Pain [Unknown]
  - Weight increased [Unknown]
  - Drug ineffective [Unknown]
  - Swelling [Unknown]
  - Blood pressure abnormal [Unknown]
